FAERS Safety Report 4293433-8 (Version None)
Quarter: 2004Q1

REPORT INFORMATION
  Report Type: 
  Country: None (occurrence: None)
  Receive Date: 20040210
  Receipt Date: 20040210
  Transmission Date: 20041129
  Serious: Yes (Hospitalization)
  Sender: FDA-Public Use
  Company Number: None

PATIENT
  Age: 45 Year
  Sex: Male
  Weight: 73.4827 kg

DRUGS (6)
  1. TRAMADOL HCL [Suspect]
     Indication: PAIN
     Dosage: ONE TABS QID PM
     Dates: start: 20030410, end: 20031016
  2. LITHIUM CARBONATE [Suspect]
     Indication: BIPOLAR DISORDER
     Dosage: 300 MG AM , 600 MG PM
     Dates: start: 20011001
  3. CARBAMAZEPINE [Concomitant]
  4. FELODIPINE [Concomitant]
  5. FLUOXETINE [Concomitant]
  6. SIMVASTATIN [Concomitant]

REACTIONS (1)
  - CONVULSION [None]
